FAERS Safety Report 24582142 (Version 2)
Quarter: 2024Q4

REPORT INFORMATION
  Report Type: Spontaneous
  Country: JP (occurrence: JP)
  Receive Date: 20241105
  Receipt Date: 20241107
  Transmission Date: 20250115
  Serious: Yes (Other)
  Sender: BRISTOL-MYERS SQUIBB COMPANY
  Company Number: JP-BRISTOL-MYERS SQUIBB COMPANY-2024-173134

PATIENT
  Age: 74 Year
  Sex: Male

DRUGS (1)
  1. VIDAZA [Suspect]
     Active Substance: AZACITIDINE
     Indication: Myelodysplastic syndrome with multilineage dysplasia
     Dosage: 1
     Route: 042

REACTIONS (2)
  - Diarrhoea [Unknown]
  - Oropharyngeal cancer recurrent [Recovered/Resolved]
